FAERS Safety Report 7465127-9 (Version None)
Quarter: 2011Q2

REPORT INFORMATION
  Report Type: 
  Country: None (occurrence: None)
  Receive Date: 20110509
  Receipt Date: 20110426
  Transmission Date: 20111010
  Serious: Yes (Other)
  Sender: FDA-Public Use
  Company Number: US-JNJFOC-20110412313

PATIENT
  Sex: Female
  Weight: 72.58 kg

DRUGS (1)
  1. LEVAQUIN [Suspect]
     Indication: VIRAL SINUSITIS
     Route: 048

REACTIONS (8)
  - HYPERCHLORHYDRIA [None]
  - GASTROINTESTINAL DISORDER [None]
  - TENDON PAIN [None]
  - GASTRIC DISORDER [None]
  - REGURGITATION [None]
  - WEIGHT INCREASED [None]
  - VOMITING [None]
  - DYSPEPSIA [None]
